FAERS Safety Report 18358692 (Version 1)
Quarter: 2020Q4

REPORT INFORMATION
  Report Type: Spontaneous
  Country: BR (occurrence: BR)
  Receive Date: 20201008
  Receipt Date: 20201008
  Transmission Date: 20210114
  Serious: Yes (Hospitalization, Other)
  Sender: FDA-Public Use
  Company Number: BR-TEVA-2020-BR-1835316

PATIENT
  Age: 35 Year
  Sex: Female

DRUGS (15)
  1. CIPROFLOXACIN. [Suspect]
     Active Substance: CIPROFLOXACIN
     Indication: KLEBSIELLA INFECTION
     Route: 042
  2. PREDNISONE. [Suspect]
     Active Substance: PREDNISONE
     Indication: ERYTHRODERMIC PSORIASIS
     Dosage: 20 MILLIGRAM DAILY;
     Route: 065
  3. DELTAMETHRIN [Concomitant]
     Active Substance: DELTAMETHRIN
     Indication: OEDEMA
  4. HYDROCORTISONE. [Suspect]
     Active Substance: HYDROCORTISONE
     Indication: ERYTHRODERMIC PSORIASIS
     Route: 042
  5. PROMETHAZINE [Concomitant]
     Active Substance: PROMETHAZINE HYDROCHLORIDE
     Indication: ERYTHEMA
     Route: 042
  6. CYCLOSPORINE. [Concomitant]
     Active Substance: CYCLOSPORINE
     Indication: ERYTHRODERMIC PSORIASIS
     Dosage: 200 MILLIGRAM DAILY;
     Route: 065
  7. ACITRETIN. [Suspect]
     Active Substance: ACITRETIN
     Indication: ERYTHRODERMIC PSORIASIS
     Dosage: 30 MILLIGRAM DAILY;
     Route: 065
  8. POTASSIUM-PERMANGANATE [Concomitant]
     Indication: BALNEOTHERAPY
  9. PREDNISONE. [Suspect]
     Active Substance: PREDNISONE
     Indication: ERYTHRODERMIC PSORIASIS
     Dosage: 120 MILLIGRAM DAILY;
     Route: 065
  10. PROMETHAZINE [Concomitant]
     Active Substance: PROMETHAZINE HYDROCHLORIDE
     Indication: OEDEMA
  11. CYCLOSPORINE. [Concomitant]
     Active Substance: CYCLOSPORINE
     Indication: ERYTHRODERMIC PSORIASIS
     Dosage: 100 MILLIGRAM DAILY;
     Route: 065
  12. DELTAMETHRIN [Concomitant]
     Active Substance: DELTAMETHRIN
     Indication: ERYTHEMA
     Route: 061
  13. POTASSIUM-PERMANGANATE [Concomitant]
     Indication: OEDEMA
  14. ACITRETIN. [Suspect]
     Active Substance: ACITRETIN
     Indication: ERYTHRODERMIC PSORIASIS
     Dosage: 10 MILLIGRAM DAILY;
     Route: 065
  15. POTASSIUM-PERMANGANATE [Concomitant]
     Indication: ERYTHEMA
     Route: 061

REACTIONS (5)
  - Rebound effect [Recovering/Resolving]
  - Pathogen resistance [Unknown]
  - Liver function test abnormal [Recovering/Resolving]
  - Erythrodermic psoriasis [Recovering/Resolving]
  - Condition aggravated [Recovering/Resolving]
